FAERS Safety Report 6404406-0 (Version None)
Quarter: 2009Q4

REPORT INFORMATION
  Report Type: 
  Country: None (occurrence: None)
  Receive Date: 20091016
  Receipt Date: 20091005
  Transmission Date: 20100525
  Serious: Yes (Hospitalization)
  Sender: FDA-Public Use
  Company Number: RO-MERCK-0910HUN00001

PATIENT
  Age: 2 Day
  Sex: Male
  Weight: 3 kg

DRUGS (1)
  1. SINGULAIR [Suspect]
     Indication: DRUG EXPOSURE VIA BREAST MILK
     Route: 048
     Dates: start: 20090709, end: 20090727

REACTIONS (6)
  - ANAEMIA [None]
  - ARTHRITIS [None]
  - DRUG EXPOSURE VIA BREAST MILK [None]
  - IRON DEFICIENCY ANAEMIA [None]
  - IRRITABLE BOWEL SYNDROME [None]
  - UPPER RESPIRATORY TRACT INFECTION [None]
